FAERS Safety Report 6883216-4 (Version None)
Quarter: 2010Q3

REPORT INFORMATION
  Report Type: 
  Country: None (occurrence: None)
  Receive Date: 20100727
  Receipt Date: 20071004
  Transmission Date: 20110219
  Serious: Yes (Hospitalization, Other)
  Sender: FDA-Public Use
  Company Number: US-PFIZER INC-2007016268

PATIENT
  Sex: Female
  Weight: 108.9 kg

DRUGS (12)
  1. CELEBREX [Suspect]
     Indication: RHEUMATOID ARTHRITIS
     Route: 048
     Dates: start: 20040901
  2. CELEBREX [Suspect]
     Indication: PAIN
  3. VIOXX [Suspect]
     Indication: RHEUMATOID ARTHRITIS
     Route: 048
     Dates: start: 20030320, end: 20040930
  4. CYCLOBENZAPRINE [Concomitant]
     Dates: start: 20041227, end: 20051101
  5. HYDROCODONE BITARTRATE [Concomitant]
     Dates: start: 20030213, end: 20060301
  6. ORPHENADRINE CITRATE [Concomitant]
     Dates: start: 20030607, end: 20030623
  7. QUININE SULFATE [Concomitant]
     Dates: start: 20030825, end: 20030901
  8. LISINOPRIL [Concomitant]
     Indication: HYPERTENSION
     Dates: start: 20030320
  9. HYDROCHLOROTHIAZIDE [Concomitant]
     Indication: HYPERTENSION
     Dates: start: 20031023, end: 20040101
  10. HYDROCHLOROTHIAZIDE [Concomitant]
     Indication: OEDEMA
  11. LIPITOR [Concomitant]
     Indication: BLOOD CHOLESTEROL INCREASED
     Dates: start: 20030320
  12. SYNTHROID [Concomitant]
     Indication: ENDOCRINE DISORDER
     Dates: start: 20030320

REACTIONS (2)
  - CEREBROVASCULAR ACCIDENT [None]
  - DEEP VEIN THROMBOSIS [None]
